FAERS Safety Report 21914311 (Version 4)
Quarter: 2023Q1

REPORT INFORMATION
  Report Type: Report from Study
  Country: US (occurrence: US)
  Receive Date: 20230126
  Receipt Date: 20230313
  Transmission Date: 20230418
  Serious: Yes (Other)
  Sender: FDA-Public Use
  Company Number: US-ABBVIE-4282233

PATIENT
  Age: 52 Year
  Sex: Female

DRUGS (2)
  1. HUMIRA [Suspect]
     Active Substance: ADALIMUMAB
     Indication: Ankylosing spondylitis
     Dosage: CF
     Route: 058
     Dates: start: 20220301, end: 20230104
  2. HUMIRA [Suspect]
     Active Substance: ADALIMUMAB
     Dosage: CF?DISCONTINUED IN 2022
     Route: 058
     Dates: start: 20220214

REACTIONS (4)
  - Gastric neoplasm [Unknown]
  - COVID-19 [Recovered/Resolved]
  - Aneurysm [Recovering/Resolving]
  - Arterial repair [Recovering/Resolving]

NARRATIVE: CASE EVENT DATE: 20220701
